FAERS Safety Report 7942646-X (Version None)
Quarter: 2011Q4

REPORT INFORMATION
  Report Type: 
  Country: None (occurrence: None)
  Receive Date: 20111128
  Receipt Date: 20111123
  Transmission Date: 20120403
  Serious: Yes (Other)
  Sender: FDA-Public Use
  Company Number: US-AMGEN-USASP2011061975

PATIENT
  Age: 56 Year
  Sex: Female

DRUGS (2)
  1. ENBREL [Suspect]
     Indication: RHEUMATOID ARTHRITIS
     Dosage: 50 MG, QWK
     Dates: start: 20110829
  2. PREDNISONE TAB [Concomitant]
     Dosage: UNK

REACTIONS (6)
  - EXPOSURE TO TOXIC AGENT [None]
  - INJECTION SITE HAEMATOMA [None]
  - BLISTER [None]
  - INJECTION SITE PAIN [None]
  - URTICARIA [None]
  - INJECTION SITE INDURATION [None]
